FAERS Safety Report 15404235 (Version 6)
Quarter: 2020Q1

REPORT INFORMATION
  Report Type: Spontaneous
  Country: GB (occurrence: FR)
  Receive Date: 20180919
  Receipt Date: 20200117
  Transmission Date: 20200409
  Serious: Yes (Other)
  Sender: FDA-Public Use
  Company Number: FR-FRESENIUS KABI-FK201809629

PATIENT
  Age: 84 Year
  Sex: Male
  Weight: 85 kg

DRUGS (13)
  1. PROPOFOL (MANUFACTURER UNKNOWN) [Suspect]
     Active Substance: PROPOFOL
     Indication: ANAESTHESIA
     Dosage: 130 MG, UNK(TOTAL)
     Route: 042
     Dates: start: 20180709, end: 20180709
  2. ROCURONIUM BROMIDE. [Suspect]
     Active Substance: ROCURONIUM BROMIDE
     Indication: ANAESTHESIA
     Dosage: 100 MG, ONCE, UNK (TOTAL)
     Route: 042
     Dates: start: 20180709, end: 20180709
  3. SUFENTANIL [Suspect]
     Active Substance: SUFENTANIL
     Indication: ANAESTHESIA
     Dosage: 95 UG, UNK
     Route: 042
     Dates: start: 20180709, end: 20180712
  4. ONDANSETRON (MANUFACTURER UNKNOWN) [Suspect]
     Active Substance: ONDANSETRON
     Indication: PROPHYLAXIS
     Dosage: 4 MG, UNK
     Route: 042
     Dates: start: 20180709, end: 20180709
  5. TRAMADOL HYDROCHLORIDE. [Suspect]
     Active Substance: TRAMADOL HYDROCHLORIDE
     Indication: PAIN
     Dosage: 100 MG, QD
     Route: 042
     Dates: start: 20180709, end: 20180710
  6. AZTREONAM. [Suspect]
     Active Substance: AZTREONAM
     Indication: INFECTION
     Dosage: 1 G, QD
     Route: 042
     Dates: start: 20180709, end: 20180709
  7. PARACETAMOL [Suspect]
     Active Substance: ACETAMINOPHEN
     Indication: PAIN
     Dosage: 1 G, 1X/DAY
     Route: 042
     Dates: start: 20180709
  8. APIXABAN [Suspect]
     Active Substance: APIXABAN
     Indication: CEREBROVASCULAR ACCIDENT PROPHYLAXIS
     Dosage: 1 DOSAGE FORM, QD
     Route: 048
     Dates: start: 20180611, end: 20180709
  9. OXYCODONE HYDROCHLORIDE. [Suspect]
     Active Substance: OXYCODONE HYDROCHLORIDE
     Indication: PAIN
     Dosage: 2 MG, UNK
     Route: 042
     Dates: start: 20180709, end: 20180709
  10. GENTAMICIN (MANUFACTURER UNKNOWN) [Suspect]
     Active Substance: GENTAMICIN
     Indication: INFECTION
     Dosage: 640 MG, UNK
     Route: 042
     Dates: start: 20180709, end: 20180709
  11. TRAMADOL HYDROCHLORIDE. [Suspect]
     Active Substance: TRAMADOL HYDROCHLORIDE
     Dosage: 100 MG, QD
     Route: 042
     Dates: start: 20180710, end: 20180710
  12. APIXABAN [Suspect]
     Active Substance: APIXABAN
     Indication: ATRIAL FIBRILLATION
     Dosage: 1 DOSAGE FORM, QD
     Route: 048
     Dates: start: 20180709, end: 20180709
  13. DAPTOMYCIN. [Suspect]
     Active Substance: DAPTOMYCIN
     Indication: INFECTION
     Dosage: 850 MG, 1X/DAY
     Route: 042
     Dates: start: 20180709, end: 20180710

REACTIONS (3)
  - Blood alkaline phosphatase increased [Recovering/Resolving]
  - Hypertransaminasaemia [Recovered/Resolved]
  - Blood alkaline phosphatase increased [Recovering/Resolving]

NARRATIVE: CASE EVENT DATE: 20180710
